FAERS Safety Report 14542607 (Version 1)
Quarter: 2018Q1

REPORT INFORMATION
  Report Type: Spontaneous
  Country: US (occurrence: US)
  Receive Date: 20180216
  Receipt Date: 20180216
  Transmission Date: 20180509
  Serious: Yes (Life-Threatening, Hospitalization, Other)
  Sender: FDA-Public Use
  Company Number: US-OTSUKA-DJ201306639

PATIENT

DRUGS (1)
  1. ABILIFY [Suspect]
     Active Substance: ARIPIPRAZOLE
     Indication: SCHIZOAFFECTIVE DISORDER BIPOLAR TYPE
     Route: 065
     Dates: start: 2008

REACTIONS (4)
  - Chest pain [Unknown]
  - Hypotension [Unknown]
  - Gastrointestinal infection [Unknown]
  - Diabetic coma [Unknown]

NARRATIVE: CASE EVENT DATE: 200808
